FAERS Safety Report 6640690-6 (Version None)
Quarter: 2010Q1

REPORT INFORMATION
  Report Type: 
  Country: None (occurrence: None)
  Receive Date: 20100318
  Receipt Date: 20100304
  Transmission Date: 20100710
  Serious: Yes (Hospitalization)
  Sender: FDA-Public Use
  Company Number: ES-MYLANLABS-2010S1003583

PATIENT
  Age: 15 Year
  Sex: Female

DRUGS (3)
  1. CARBAMAZEPINE [Suspect]
     Indication: COMPLEX PARTIAL SEIZURES
     Dosage: TITRATED TO 2400 MG/DAY
     Route: 065
     Dates: start: 20060220, end: 20060412
  2. PHENYTOIN [Suspect]
     Indication: COMPLEX PARTIAL SEIZURES
     Route: 065
     Dates: start: 20060304, end: 20060412
  3. VALPROIC ACID [Suspect]
     Indication: COMPLEX PARTIAL SEIZURES
     Route: 065
     Dates: start: 20060412, end: 20060413

REACTIONS (2)
  - DRUG RASH WITH EOSINOPHILIA AND SYSTEMIC SYMPTOMS [None]
  - HAEMOLYSIS [None]
